FAERS Safety Report 5382175-3 (Version None)
Quarter: 2007Q3

REPORT INFORMATION
  Report Type: 
  Country: None (occurrence: None)
  Receive Date: 20070709
  Receipt Date: 20070627
  Transmission Date: 20080115
  Serious: Yes (Other)
  Sender: FDA-Public Use
  Company Number: US-PFIZER INC-2007052805

PATIENT
  Sex: Female
  Weight: 65 kg

DRUGS (6)
  1. LIPITOR [Suspect]
     Indication: BLOOD CHOLESTEROL INCREASED
  2. DYAZIDE [Concomitant]
  3. VITAMIN A [Concomitant]
  4. VITAMIN B [Concomitant]
  5. VITAMIN D [Concomitant]
  6. EZETIMIBE [Concomitant]

REACTIONS (5)
  - BALANCE DISORDER [None]
  - BRONCHITIS [None]
  - DRUG INEFFECTIVE [None]
  - GAIT DISTURBANCE [None]
  - ILL-DEFINED DISORDER [None]
